FAERS Safety Report 4982815-4 (Version None)
Quarter: 2006Q2

REPORT INFORMATION
  Report Type: 
  Country: None (occurrence: None)
  Receive Date: 20060420
  Receipt Date: 20060403
  Transmission Date: 20061013
  Serious: Yes (Hospitalization)
  Sender: FDA-Public Use
  Company Number: DSA_27964_2006

PATIENT
  Age: 66 Year
  Sex: Male

DRUGS (9)
  1. VASOTEC [Suspect]
     Indication: HYPERTENSION
     Dosage: 10 MG BID PO
     Route: 048
     Dates: start: 19960101
  2. BLINDED TRIAL MEDICATION [Suspect]
     Indication: PROSTATE CANCER
     Dosage: DF QD PO
     Route: 048
     Dates: start: 20041110, end: 20051201
  3. COREG [Suspect]
     Indication: HYPERTENSION
     Dosage: 12.5 MG BID PO
     Route: 048
     Dates: start: 19960101
  4. LASIX /00032601/ [Suspect]
     Indication: HYPERTENSION
     Dosage: 40 MG Q DAY PO
     Route: 048
     Dates: start: 19920101
  5. INSULIN [Suspect]
     Indication: DIABETES MELLITUS
     Dosage: DF SC
     Route: 058
  6. PLAVIX /01220701/ [Concomitant]
  7. ASPIRIN [Concomitant]
  8. POTASSIUM CHLORIDE [Concomitant]
  9. VYTORIN [Concomitant]

REACTIONS (8)
  - ATRIAL FIBRILLATION [None]
  - BLOOD GLUCOSE DECREASED [None]
  - CARDIAC ENZYMES INCREASED [None]
  - DIABETIC COMPLICATION [None]
  - DIZZINESS [None]
  - ESCHERICHIA URINARY TRACT INFECTION [None]
  - VASCULAR CALCIFICATION [None]
  - VENOUS STASIS [None]
